FAERS Safety Report 15492953 (Version 1)
Quarter: 2018Q4

REPORT INFORMATION
  Report Type: Report from Study
  Country: CH (occurrence: CH)
  Receive Date: 20181012
  Receipt Date: 20181012
  Transmission Date: 20190205
  Serious: Yes (Hospitalization)
  Sender: FDA-Public Use
  Company Number: CH-ROCHE-2193141

PATIENT

DRUGS (13)
  1. NOVALGIN (METAMIZOLE SODIUM) [Concomitant]
     Active Substance: METAMIZOLE SODIUM
     Indication: PAIN
     Route: 048
     Dates: start: 20170709
  2. FENTANYL. [Concomitant]
     Active Substance: FENTANYL
     Indication: PAIN
     Route: 042
     Dates: start: 20170717
  3. NALBUPHINE [Concomitant]
     Active Substance: NALBUPHINE
     Route: 042
     Dates: start: 20170710
  4. TEMOZOLOMIDE. [Suspect]
     Active Substance: TEMOZOLOMIDE
     Indication: NON-SMALL CELL LUNG CANCER
     Dosage: THE DATE OF LAST ADMINISTERED 07/JUL/2017.
     Route: 048
     Dates: start: 20170703
  5. CO-AMOXICILLIN [Concomitant]
     Active Substance: AMOXICILLIN\CLAVULANATE POTASSIUM
     Indication: PYREXIA
     Route: 048
     Dates: start: 20170710
  6. MERONEM [Concomitant]
     Active Substance: MEROPENEM
     Indication: PYREXIA
     Dosage: THE LAST DOSE ADMINISTERED WAS 10/JUL/2017
     Route: 042
     Dates: start: 20170709
  7. BEVACIZUMAB. [Suspect]
     Active Substance: BEVACIZUMAB
     Indication: NON-SMALL CELL LUNG CANCER
     Dosage: THE DATE OF LAST ADMINISTERED WAS 03/JUL/2017
     Route: 042
     Dates: start: 20170703
  8. CO-AMOXICILLIN [Concomitant]
     Active Substance: AMOXICILLIN\CLAVULANATE POTASSIUM
     Indication: INFECTION
     Dosage: THE DATE OF LAST ADMINISTERED WAS 14/JUL/2017
     Route: 048
     Dates: start: 20170710
  9. NOVALGIN (METAMIZOLE SODIUM) [Concomitant]
     Active Substance: METAMIZOLE SODIUM
     Indication: PYREXIA
     Route: 048
     Dates: start: 20170710
  10. NALBUPHINE [Concomitant]
     Active Substance: NALBUPHINE
     Indication: PAIN
     Dosage: THE DATE OF LAST DOSE :12/JUL/2017
     Route: 042
     Dates: start: 20170711
  11. TOPOTECAN [Suspect]
     Active Substance: TOPOTECAN HYDROCHLORIDE
     Indication: NON-SMALL CELL LUNG CANCER
     Dosage: THE DATE OF LAST ADMINISTERED 07/JUL/2017
     Route: 042
     Dates: start: 20170703
  12. ZOFRAN [Concomitant]
     Active Substance: ONDANSETRON HYDROCHLORIDE
     Indication: NAUSEA
     Route: 048
     Dates: start: 20170712
  13. CYKLOKAPRON [Concomitant]
     Active Substance: TRANEXAMIC ACID
     Indication: MOUTH HAEMORRHAGE
     Route: 048
     Dates: start: 20170710

REACTIONS (4)
  - Hypoxia [Not Recovered/Not Resolved]
  - Fatigue [Not Recovered/Not Resolved]
  - Pulmonary oedema [Not Recovered/Not Resolved]
  - Pyrexia [Not Recovered/Not Resolved]

NARRATIVE: CASE EVENT DATE: 20170709
